FAERS Safety Report 14650685 (Version 1)
Quarter: 2018Q1

REPORT INFORMATION
  Report Type: Spontaneous
  Country: CN (occurrence: CN)
  Receive Date: 20180316
  Receipt Date: 20180316
  Transmission Date: 20180509
  Serious: Yes (Other)
  Sender: FDA-Public Use
  Company Number: CN-ZO SKIN HEALTH-2018ZOS00001

PATIENT

DRUGS (6)
  1. ARSENIC TRIOXIDE [Concomitant]
     Active Substance: ARSENIC TRIOXIDE
     Dosage: POST REMISSION: 4 WEEKS ON/OFF
     Route: 048
  2. ARSENIC TRIOXIDE [Concomitant]
     Active Substance: ARSENIC TRIOXIDE
     Dosage: 60 MG/KG, UNK
     Route: 048
  3. TRETINOIN. [Suspect]
     Active Substance: TRETINOIN
     Dosage: POST REMISSION: 2 WEEKS ON/OFF
  4. HYDROXYUREA. [Concomitant]
     Active Substance: HYDROXYUREA
     Route: 065
  5. TRETINOIN. [Suspect]
     Active Substance: TRETINOIN
     Indication: ACUTE PROMYELOCYTIC LEUKAEMIA
     Dosage: 25 MG/M2, UNK
     Route: 065
  6. CYTARABINE. [Concomitant]
     Active Substance: CYTARABINE
     Route: 065

REACTIONS (1)
  - Acute promyelocytic leukaemia differentiation syndrome [Recovered/Resolved]
